FAERS Safety Report 7210571-8 (Version None)
Quarter: 2011Q1

REPORT INFORMATION
  Report Type: 
  Country: None (occurrence: None)
  Receive Date: 20110105
  Receipt Date: 20101224
  Transmission Date: 20110831
  Serious: Yes (Hospitalization)
  Sender: FDA-Public Use
  Company Number: FR-JNJFOC-20101208202

PATIENT
  Age: 64 Year
  Sex: Female

DRUGS (4)
  1. DEXAMETHASONE SODIUM PHOSPHATE [Suspect]
     Indication: PREMEDICATION
     Route: 065
  2. ZOFRAN [Suspect]
     Indication: PREMEDICATION
     Route: 065
  3. TRABECTEDIN [Suspect]
     Indication: OVARIAN CANCER
     Route: 042
  4. CAELYX [Suspect]
     Indication: OVARIAN CANCER
     Route: 042

REACTIONS (4)
  - MALAISE [None]
  - DYSPNOEA [None]
  - PALPITATIONS [None]
  - INFUSION RELATED REACTION [None]
